FAERS Safety Report 8495575-X (Version None)
Quarter: 2012Q3

REPORT INFORMATION
  Report Type: 
  Country: None (occurrence: None)
  Receive Date: 20120709
  Receipt Date: 20120628
  Transmission Date: 20120928
  Serious: Yes (Hospitalization)
  Sender: FDA-Public Use
  Company Number: FR-VERTEX PHARMACEUTICALS INC.-000000000000000124

PATIENT
  Sex: Female
  Weight: 58 kg

DRUGS (24)
  1. COPEGUS [Concomitant]
     Dosage: DOSAGE FORM: UNKNOWN
     Route: 048
     Dates: start: 20111023, end: 20111208
  2. PROZAC [Concomitant]
     Indication: ANTIDEPRESSANT THERAPY
     Dates: start: 20080101, end: 20111211
  3. AMOXICILLIN TRIHYDRATE [Concomitant]
     Indication: URINARY TRACT INFECTION
     Dates: start: 20111122, end: 20111128
  4. NORFLOXACIN [Concomitant]
     Indication: ANTIBIOTIC THERAPY
     Dates: start: 20110101, end: 20111025
  5. PEGASYS [Concomitant]
     Dates: start: 20110914
  6. LEVOTHYROXINE SODIUM [Concomitant]
  7. AMLODIPINE BESYLATE [Concomitant]
  8. COPEGUS [Concomitant]
     Indication: HEPATITIS C
     Dosage: DOSAGE FORM: UNKNOWN
     Route: 048
     Dates: start: 20110914, end: 20111019
  9. LASIX [Concomitant]
  10. LEVOTHYROXINE SODIUM [Concomitant]
     Indication: THYROID DISORDER
     Dosage: FOR SEVERAL YEARS
  11. NEORECORMON [Concomitant]
     Dates: start: 20111012
  12. NEORECORMON [Concomitant]
     Dates: start: 20111005
  13. OROKEN [Concomitant]
     Indication: URINARY TRACT INFECTION
     Dates: start: 20111031, end: 20111107
  14. HYDROCORTISONE [Concomitant]
     Indication: HYPOPITUITARISM
  15. AMLODIPINE BESYLATE [Concomitant]
     Indication: HYPERTENSION
     Dates: start: 20090201, end: 20111122
  16. ATARAX [Concomitant]
     Indication: RASH
     Dates: start: 20111128, end: 20111211
  17. PEGASYS [Concomitant]
     Indication: HEPATITIS C
     Dosage: DOSAGE FORM: UNKNOWN
     Route: 058
     Dates: start: 20110914, end: 20111019
  18. PEGASYS [Concomitant]
     Dosage: DOSAGE FORM: UNKNOWN
     Route: 058
     Dates: start: 20111022, end: 20111207
  19. COPEGUS [Concomitant]
     Route: 048
     Dates: start: 20110914, end: 20111020
  20. SPIRONOLACTONE [Concomitant]
     Indication: PRODUCT USED FOR UNKNOWN INDICATION
     Route: 065
     Dates: end: 20111101
  21. TELAPREVIR [Suspect]
     Indication: HEPATITIS C
     Dosage: DOSAGE FORM: TABLET
     Route: 048
     Dates: start: 20110914, end: 20111019
  22. TELAPREVIR [Suspect]
     Dosage: DOSAGE FORM: TABLET
     Route: 048
     Dates: start: 20111023, end: 20111208
  23. LASIX [Concomitant]
     Indication: DIURETIC THERAPY
     Route: 065
     Dates: end: 20111101
  24. PRAVASTATIN [Concomitant]
     Indication: PRODUCT USED FOR UNKNOWN INDICATION
     Dates: end: 20111211

REACTIONS (7)
  - HALLUCINATION, VISUAL [None]
  - RENAL FAILURE [None]
  - HAEMOLYTIC ANAEMIA [None]
  - RENAL FAILURE ACUTE [None]
  - TREATMENT NONCOMPLIANCE [None]
  - CONFUSIONAL STATE [None]
  - DRUG ADMINISTRATION ERROR [None]
